FAERS Safety Report 18521704 (Version 1)
Quarter: 2020Q4

REPORT INFORMATION
  Report Type: Spontaneous
  Country: US (occurrence: US)
  Receive Date: 20201118
  Receipt Date: 20201118
  Transmission Date: 20210114
  Serious: Yes (Hospitalization)
  Sender: FDA-Public Use
  Company Number: None

PATIENT
  Age: 52 Year
  Sex: Female

DRUGS (16)
  1. OXYCODONE [Concomitant]
     Active Substance: OXYCODONE
  2. ASPIRIN. [Concomitant]
     Active Substance: ASPIRIN
  3. PANTOPRAZOLE [Concomitant]
     Active Substance: PANTOPRAZOLE
  4. HYDROMORPHONE [Concomitant]
     Active Substance: HYDROMORPHONE
  5. PRIMIDONE. [Concomitant]
     Active Substance: PRIMIDONE
  6. HUMIRA [Suspect]
     Active Substance: ADALIMUMAB
     Indication: HIDRADENITIS
     Dosage: ?          OTHER FREQUENCY:ONCE WEEKLY;?
     Route: 058
     Dates: start: 20181231
  7. DICLOFENAC [Concomitant]
     Active Substance: DICLOFENAC
  8. SULFASALAZINE. [Concomitant]
     Active Substance: SULFASALAZINE
  9. TIZANIDINE. [Concomitant]
     Active Substance: TIZANIDINE
  10. FAMCICLOVIR. [Concomitant]
     Active Substance: FAMCICLOVIR
  11. MUPIROCIN. [Concomitant]
     Active Substance: MUPIROCIN
  12. POTASSIUM CHLORIDE. [Concomitant]
     Active Substance: POTASSIUM CHLORIDE
  13. METHOTREXATE. [Concomitant]
     Active Substance: METHOTREXATE
  14. FOLIC ACID. [Concomitant]
     Active Substance: FOLIC ACID
  15. PROPRANOLOL [Concomitant]
     Active Substance: PROPRANOLOL HYDROCHLORIDE
  16. FLUCONAZOLE. [Concomitant]
     Active Substance: FLUCONAZOLE

REACTIONS (1)
  - Knee operation [None]

NARRATIVE: CASE EVENT DATE: 20201118
